FAERS Safety Report 16833715 (Version 1)
Quarter: 2019Q3

REPORT INFORMATION
  Report Type: Spontaneous
  Country: US (occurrence: US)
  Receive Date: 20190731
  Receipt Date: 20190731
  Transmission Date: 20191005
  Serious: No
  Sender: FDA-Public Use
  Company Number: None

PATIENT
  Age: 59 Year
  Sex: Female

DRUGS (5)
  1. AFINITOR [Suspect]
     Active Substance: EVEROLIMUS
     Dates: start: 20190531, end: 20190731
  2. AMLODIPINE [Concomitant]
     Active Substance: AMLODIPINE BESYLATE
  3. LOSARTAN. [Concomitant]
     Active Substance: LOSARTAN
  4. METOPROLOL. [Concomitant]
     Active Substance: METOPROLOL
  5. TARTRATE [Concomitant]

REACTIONS (2)
  - Disease progression [None]
  - Therapy cessation [None]

NARRATIVE: CASE EVENT DATE: 20190731
